FAERS Safety Report 11785042 (Version 1)
Quarter: 2015Q4

REPORT INFORMATION
  Report Type: Spontaneous
  Country: MX (occurrence: None)
  Receive Date: 20151125
  Receipt Date: 20151125
  Transmission Date: 20160305
  Serious: Yes (Disabling)
  Sender: FDA-Public Use
  Company Number: None

PATIENT
  Age: 78 Year
  Sex: Male
  Weight: 78 kg

DRUGS (7)
  1. METOPROLOL [Concomitant]
     Active Substance: METOPROLOL
  2. TAMSOLUSINA [Concomitant]
  3. CLOPIDOGREL [Concomitant]
     Active Substance: CLOPIDOGREL BISULFATE
  4. ACID A SALIC [Concomitant]
  5. LOSARTAN DIGOXINA [Concomitant]
  6. DIRRET 100 MG BEST [Suspect]
     Active Substance: DICLOFENAC
     Indication: PAIN
     Dosage: 1 PILL
     Route: 048
     Dates: start: 20151123
  7. DIRRET 100 MG BEST [Suspect]
     Active Substance: DICLOFENAC
     Indication: INFLAMMATION
     Dosage: 1 PILL
     Route: 048
     Dates: start: 20151123

REACTIONS (4)
  - Feeling abnormal [None]
  - Haematemesis [None]
  - Abnormal faeces [None]
  - Faeces discoloured [None]

NARRATIVE: CASE EVENT DATE: 20151123
